FAERS Safety Report 5512707-3 (Version None)
Quarter: 2007Q4

REPORT INFORMATION
  Report Type: 
  Country: None (occurrence: None)
  Receive Date: 20071112
  Receipt Date: 20071031
  Transmission Date: 20080405
  Serious: Yes (Hospitalization, Other)
  Sender: FDA-Public Use
  Company Number: US-ASTRAZENECA-2007UW08650

PATIENT
  Sex: Female
  Weight: 181.4 kg

DRUGS (3)
  1. SEROQUEL [Suspect]
     Indication: HALLUCINATIONS, MIXED
     Dosage: 5 AT BEDTIME
     Route: 048
     Dates: start: 20011113
  2. THORAZINE [Concomitant]
  3. ZYPREXA [Concomitant]

REACTIONS (5)
  - DIABETES MELLITUS [None]
  - EXTRAPYRAMIDAL DISORDER [None]
  - HYPERPROLACTINAEMIA [None]
  - NEUROLEPTIC MALIGNANT SYNDROME [None]
  - TARDIVE DYSKINESIA [None]
